FAERS Safety Report 9224195 (Version 1)
Quarter: 2013Q2

REPORT INFORMATION
  Report Type: Spontaneous
  Country: US (occurrence: US)
  Receive Date: 20130411
  Receipt Date: 20130411
  Transmission Date: 20140414
  Serious: No
  Sender: FDA-Public Use
  Company Number: US-PFIZER INC-2013109829

PATIENT
  Sex: Male

DRUGS (2)
  1. VIAGRA [Suspect]
     Dosage: UNK
     Dates: start: 2010
  2. VIAGRA [Suspect]
     Dosage: 50 MG, UNK

REACTIONS (1)
  - Drug ineffective [Unknown]
